FAERS Safety Report 6927810-0 (Version None)
Quarter: 2010Q3

REPORT INFORMATION
  Report Type: 
  Country: None (occurrence: None)
  Receive Date: 20100817
  Receipt Date: 20100809
  Transmission Date: 20110219
  Serious: Yes (Other)
  Sender: FDA-Public Use
  Company Number: JP-PFIZER INC-2010099471

PATIENT
  Age: 37 Year
  Sex: Male

DRUGS (2)
  1. ZOLOFT [Suspect]
     Dosage: 25 MG, 1X/DAY
     Dates: start: 20100805
  2. DEPROMEL [Concomitant]
     Dosage: 25 MG, 2X/DAY
     Dates: end: 20100805

REACTIONS (3)
  - ALTERED STATE OF CONSCIOUSNESS [None]
  - FEELING HOT [None]
  - HALLUCINATION [None]
